FAERS Safety Report 12721184 (Version 1)
Quarter: 2016Q3

REPORT INFORMATION
  Report Type: Report from Study
  Country: BR (occurrence: BR)
  Receive Date: 20160907
  Receipt Date: 20160907
  Transmission Date: 20161109
  Serious: Yes (Other)
  Sender: FDA-Public Use
  Company Number: PHHY2016BR120299

PATIENT
  Sex: Female
  Weight: 75 kg

DRUGS (1)
  1. VALSARTAN. [Suspect]
     Active Substance: VALSARTAN
     Indication: HYPERTENSION
     Dosage: 80 MG, QD (IN THE MORNING) AND 160 MG, QD (AT NIGHT)
     Route: 048

REACTIONS (5)
  - Dyspnoea [Recovering/Resolving]
  - Cerebrovascular accident [Recovering/Resolving]
  - Brain injury [Unknown]
  - Inappropriate schedule of drug administration [Unknown]
  - Gait disturbance [Unknown]
